FAERS Safety Report 20867132 (Version 1)
Quarter: 2022Q2

REPORT INFORMATION
  Report Type: Spontaneous
  Country: GB (occurrence: GB)
  Receive Date: 20220524
  Receipt Date: 20220524
  Transmission Date: 20220721
  Serious: Yes (Other)
  Sender: FDA-Public Use
  Company Number: GB-MHRA-MED-202205171609224800-5OOY1

PATIENT

DRUGS (2)
  1. RIFAMPIN [Suspect]
     Active Substance: RIFAMPIN
     Indication: Infection
     Dosage: 600 MILLIGRAM, BID(600MG BD INITIALLY THEN REINTRODUCED AT 450MG BD)
  2. RIFAMPIN [Suspect]
     Active Substance: RIFAMPIN
     Dosage: 450 MILLIGRAM, BID (600MG BD INITIALLY THEN REINTRODUCED AT 450MG BD)

REACTIONS (6)
  - Thrombocytopenia [Recovered/Resolved]
  - Pyrexia [Recovered/Resolved]
  - C-reactive protein increased [Recovered/Resolved]
  - Rash macular [Recovered/Resolved]
  - Rash papular [Recovered/Resolved]
  - Back pain [Recovered/Resolved]

NARRATIVE: CASE EVENT DATE: 20220406
